FAERS Safety Report 7086878-4 (Version None)
Quarter: 2010Q4

REPORT INFORMATION
  Report Type: 
  Country: None (occurrence: None)
  Receive Date: 20101105
  Receipt Date: 20101024
  Transmission Date: 20110411
  Serious: Yes (Other)
  Sender: FDA-Public Use
  Company Number: BR-AMGEN-BRASP2010001071

PATIENT

DRUGS (2)
  1. ENBREL [Suspect]
     Dosage: UNKNOWN
  2. RITUXIMAB [Suspect]

REACTIONS (2)
  - DRUG INEFFECTIVE [None]
  - FIBROUS HISTIOCYTOMA [None]
